FAERS Safety Report 7021666-6 (Version None)
Quarter: 2010Q3

REPORT INFORMATION
  Report Type: 
  Country: None (occurrence: None)
  Receive Date: 20100928
  Receipt Date: 20100914
  Transmission Date: 20110219
  Serious: Yes (Other)
  Sender: FDA-Public Use
  Company Number: 2010AP001996

PATIENT
  Age: 37 Year
  Sex: Female

DRUGS (2)
  1. CITALOPRAM HYDROBROMIDE [Suspect]
     Indication: DEPRESSION
     Dosage: 20 MG; PO, 10 MG, PO
     Route: 048
  2. LEVOTHYROXINE SODIUM [Concomitant]

REACTIONS (2)
  - DRUG INTERACTION [None]
  - THYROXINE FREE INCREASED [None]
